FAERS Safety Report 17747010 (Version 2)
Quarter: 2020Q2

REPORT INFORMATION
  Report Type: Report from Study
  Country: CA (occurrence: CA)
  Receive Date: 20200505
  Receipt Date: 20200614
  Transmission Date: 20200714
  Serious: Yes (Death)
  Sender: FDA-Public Use
  Company Number: CA-HLS-202000429

PATIENT
  Age: 75 Year
  Sex: Male

DRUGS (3)
  1. CLOZARIL [Suspect]
     Active Substance: CLOZAPINE
     Indication: PARANOIA
     Dosage: UNKNOWN
     Route: 048
     Dates: start: 20171211, end: 20200307
  2. CLOZARIL [Suspect]
     Active Substance: CLOZAPINE
     Indication: DEMENTIA ALZHEIMER^S TYPE
     Dosage: UNKNOWN
     Route: 048
     Dates: start: 20171211, end: 20200307
  3. CLOZARIL [Suspect]
     Active Substance: CLOZAPINE
     Indication: DELIRIUM
     Dosage: UNKNOWN
     Route: 048
     Dates: start: 20171211, end: 20200307

REACTIONS (1)
  - Pneumonia [Fatal]

NARRATIVE: CASE EVENT DATE: 202003
